FAERS Safety Report 5261117-5 (Version None)
Quarter: 2007Q1

REPORT INFORMATION
  Report Type: 
  Country: None (occurrence: None)
  Receive Date: 20070309
  Receipt Date: 20070305
  Transmission Date: 20070707
  Serious: Yes (Death, Life-Threatening, Hospitalization)
  Sender: FDA-Public Use
  Company Number: FR-ELI_LILLY_AND_COMPANY-FR200703001122

PATIENT
  Age: 59 Year
  Sex: Male

DRUGS (3)
  1. CIALIS [Suspect]
     Route: 048
  2. CALCIPARINE [Concomitant]
  3. ZOLOFT [Concomitant]

REACTIONS (9)
  - CARDIAC ARREST [None]
  - COMA [None]
  - DYSPNOEA [None]
  - HAEMATOCHEZIA [None]
  - HYPERHIDROSIS [None]
  - PNEUMONIA ASPIRATION [None]
  - PRODUCTIVE COUGH [None]
  - SUPRAVENTRICULAR TACHYCARDIA [None]
  - VENTRICULAR TACHYCARDIA [None]
